FAERS Safety Report 4285831-3 (Version None)
Quarter: 2004Q1

REPORT INFORMATION
  Report Type: 
  Country: None (occurrence: None)
  Receive Date: 20040203
  Receipt Date: 20040120
  Transmission Date: 20041129
  Serious: Yes (Hospitalization)
  Sender: FDA-Public Use
  Company Number: 12480471

PATIENT
  Age: 34 Year
  Sex: Female

DRUGS (4)
  1. STAVUDINE [Suspect]
     Indication: HIV INFECTION
     Dosage: 40 MILLIGRAM, 1/12 HOUR
  2. RITONAVIR [Suspect]
     Indication: HIV INFECTION
     Dosage: 600 MILLIGRAM, 1/12 HOUR
  3. LAMIVUDINE [Suspect]
     Indication: HIV INFECTION
     Dosage: 150 MILLIGRAM, 1/12 HOUR
  4. ERGOTAMINE (ERGOTAMINE TARTRATE) [Suspect]
     Dosage: 1 MILLIGRAM, 3 TOTAL

REACTIONS (21)
  - BLINDNESS TRANSIENT [None]
  - BLOOD PRESSURE SYSTOLIC INCREASED [None]
  - CEREBRAL INFARCTION [None]
  - COMA [None]
  - CONFUSIONAL STATE [None]
  - CYANOSIS [None]
  - DIARRHOEA [None]
  - DISORIENTATION [None]
  - DIZZINESS [None]
  - DRUG INEFFECTIVE [None]
  - HEADACHE [None]
  - HYPOPERFUSION [None]
  - HYPOTENSION [None]
  - INFARCTION [None]
  - NERVOUS SYSTEM DISORDER [None]
  - PERIPHERAL COLDNESS [None]
  - PULSE ABSENT [None]
  - VASCULAR STENOSIS [None]
  - VASCULITIS [None]
  - VASOSPASM [None]
  - VOMITING [None]
